FAERS Safety Report 10052805 (Version 1)
Quarter: 2014Q1

REPORT INFORMATION
  Report Type: Spontaneous
  Country: GB (occurrence: None)
  Receive Date: 20140331
  Receipt Date: 20140331
  Transmission Date: 20141002
  Serious: Yes (Hospitalization)
  Sender: FDA-Public Use
  Company Number: AG-2012-0916

PATIENT
  Age: 68 Year
  Sex: Male
  Weight: 82 kg

DRUGS (21)
  1. CHLORAMBUCIL (UNKNOWN) [Suspect]
     Indication: CHRONIC LYMPHOCYTIC LEUKAEMIA
     Dates: start: 20120711
  2. OFATUMUMAB [Suspect]
     Indication: CHRONIC LYMPHOCYTIC LEUKAEMIA
     Route: 042
     Dates: start: 20120711
  3. CETIRIZINE [Concomitant]
  4. VALSARTAN [Concomitant]
  5. BISOPROLOL [Concomitant]
  6. PARACETAMOL [Concomitant]
  7. CHLORPHENIRAMINE [Concomitant]
  8. FRUSEMIDE [Concomitant]
  9. LATANOPROST (EYE DROPS, SOLUTION) [Concomitant]
  10. PREDNISOLONE [Concomitant]
  11. ACICLOVIR [Concomitant]
  12. ALLOPURINOL [Concomitant]
  13. METOCLOPRAMIDE [Concomitant]
  14. ASPIRIN [Concomitant]
  15. GRANULOCYTE COLONY-STIMULATING FACTOR NOS [Concomitant]
  16. GLICLAZIDE [Concomitant]
  17. SIMVASTATIN [Concomitant]
  18. DIGOXIN [Concomitant]
  19. TAMSULOSIN [Concomitant]
  20. BECLOMETHASONE [Concomitant]
  21. DALTEPARIN [Concomitant]

REACTIONS (3)
  - Cardiac failure [None]
  - Laryngeal haemorrhage [None]
  - Haemoglobin decreased [None]
